FAERS Safety Report 9771471 (Version 1)
Quarter: 2013Q4

REPORT INFORMATION
  Report Type: Report from Study
  Country: CO (occurrence: CO)
  Receive Date: 20131219
  Receipt Date: 20131219
  Transmission Date: 20140711
  Serious: Yes (Hospitalization)
  Sender: FDA-Public Use
  Company Number: CO-ROCHE-1322192

PATIENT
  Sex: Female
  Weight: 76 kg

DRUGS (5)
  1. RANIBIZUMAB [Suspect]
     Indication: MACULAR DEGENERATION
     Route: 050
     Dates: start: 20121025
  2. RANIBIZUMAB [Suspect]
     Indication: EYE DISCHARGE
  3. FUROSEMIDE [Concomitant]
  4. LOSARTAN [Concomitant]
  5. GABAPENTIN [Concomitant]

REACTIONS (2)
  - Hypertension [Unknown]
  - Lacrimation increased [Recovered/Resolved]
